FAERS Safety Report 19462315 (Version 1)
Quarter: 2021Q2

REPORT INFORMATION
  Report Type: Report from Study
  Country: FR (occurrence: FR)
  Receive Date: 20210625
  Receipt Date: 20210625
  Transmission Date: 20210717
  Serious: Yes (Other)
  Sender: FDA-Public Use
  Company Number: FR-ACACIA PHARMA LIMITED-2113120

PATIENT
  Age: 64 Year
  Sex: Male

DRUGS (6)
  1. CISATRACURIUM BESILATE [Concomitant]
     Active Substance: CISATRACURIUM BESYLATE
     Route: 042
     Dates: start: 20210609, end: 20210610
  2. ZYVOXID [Concomitant]
     Active Substance: LINEZOLID
     Route: 042
     Dates: start: 20210606, end: 20210610
  3. HEPARIN SODIUM. [Concomitant]
     Active Substance: HEPARIN SODIUM
     Dates: start: 20210609, end: 20210610
  4. BYFAVO [Suspect]
     Active Substance: REMIMAZOLAM BESYLATE
     Indication: PRODUCT USED FOR UNKNOWN INDICATION
     Route: 042
     Dates: start: 20210610, end: 20210610
  5. NORADRENALINE [Concomitant]
     Active Substance: NOREPINEPHRINE
     Route: 042
     Dates: start: 20210609, end: 20210610
  6. SUFENTANIL CITRATE. [Concomitant]
     Active Substance: SUFENTANIL CITRATE
     Route: 042
     Dates: start: 20210609, end: 20210610

REACTIONS (1)
  - Cardiac flutter [Recovered/Resolved]

NARRATIVE: CASE EVENT DATE: 20210610
